FAERS Safety Report 11790113 (Version 1)
Quarter: 2015Q4

REPORT INFORMATION
  Report Type: Spontaneous
  Country: US (occurrence: US)
  Receive Date: 20151201
  Receipt Date: 20151201
  Transmission Date: 20160305
  Serious: Yes (Hospitalization)
  Sender: FDA-Public Use
  Company Number: US-HQ SPECIALTY-US-2015INT000653

PATIENT
  Age: 45 Year
  Sex: Male

DRUGS (2)
  1. DOXORUBICIN [Suspect]
     Active Substance: DOXORUBICIN
     Indication: MESOTHELIOMA
     Dosage: 1 MG/L, UNK
     Route: 033
  2. CISPLATIN. [Suspect]
     Active Substance: CISPLATIN
     Indication: MESOTHELIOMA
     Dosage: 4 MG/L, UNK
     Route: 033

REACTIONS (1)
  - Gastric perforation [Recovered/Resolved]
